FAERS Safety Report 4293486-7 (Version None)
Quarter: 2004Q1

REPORT INFORMATION
  Report Type: 
  Country: None (occurrence: None)
  Receive Date: 20040212
  Receipt Date: 20030630
  Transmission Date: 20041129
  Serious: No
  Sender: FDA-Public Use
  Company Number: US-GLAXOSMITHKLINE-A0414367A

PATIENT
  Sex: Female

DRUGS (1)
  1. PAXIL [Suspect]
     Route: 048

REACTIONS (7)
  - ABNORMAL BEHAVIOUR [None]
  - AGITATION [None]
  - FATIGUE [None]
  - INSOMNIA [None]
  - NERVOUSNESS [None]
  - RESTLESSNESS [None]
  - TACHYCARDIA [None]
